FAERS Safety Report 7632663-1 (Version None)
Quarter: 2011Q3

REPORT INFORMATION
  Report Type: 
  Country: None (occurrence: None)
  Receive Date: 20110725
  Receipt Date: 20101117
  Transmission Date: 20111222
  Serious: No
  Sender: FDA-Public Use
  Company Number: US-BRISTOL-MYERS SQUIBB COMPANY-15390958

PATIENT
  Age: 59 Year
  Sex: Female
  Weight: 107 kg

DRUGS (3)
  1. NEURONTIN [Concomitant]
  2. CELEBREX [Concomitant]
  3. WARFARIN SODIUM [Suspect]

REACTIONS (1)
  - ALOPECIA [None]
